FAERS Safety Report 7405068-6 (Version None)
Quarter: 2011Q2

REPORT INFORMATION
  Report Type: 
  Country: None (occurrence: None)
  Receive Date: 20110411
  Receipt Date: 20110401
  Transmission Date: 20111010
  Serious: Yes (Other)
  Sender: FDA-Public Use
  Company Number: US-ASTELLAS-2011US001143

PATIENT
  Sex: Female

DRUGS (15)
  1. PROGRAF [Suspect]
     Indication: LIVER TRANSPLANT
     Dosage: 1 MG, UID/QD
     Route: 065
  2. PROGRAF [Suspect]
     Dosage: 1 MG, Q3D
     Route: 065
  3. PROGRAF [Suspect]
     Dosage: 1 MG, TOTAL DOSE
     Route: 065
     Dates: start: 20101129, end: 20101129
  4. VITAMIN E [Concomitant]
     Indication: PRODUCT USED FOR UNKNOWN INDICATION
     Dosage: UNK
     Route: 065
  5. ASCORBIC ACID [Concomitant]
     Indication: PRODUCT USED FOR UNKNOWN INDICATION
     Dosage: UNK
     Route: 065
  6. PROTONIX [Concomitant]
     Indication: PRODUCT USED FOR UNKNOWN INDICATION
     Dosage: UNK
     Route: 065
  7. PROGRAF [Suspect]
     Dosage: 1 MG, WEEKLY
     Route: 065
  8. PROGRAF [Suspect]
     Dosage: 0.5 MG, TOTAL DOSE
     Route: 065
     Dates: start: 20110112
  9. ASPIRIN [Concomitant]
     Indication: PRODUCT USED FOR UNKNOWN INDICATION
     Dosage: UNK
     Route: 065
  10. LACTULOSE [Concomitant]
     Indication: PRODUCT USED FOR UNKNOWN INDICATION
     Dosage: 15 ML, BID
     Route: 065
  11. ACTIGALL [Concomitant]
     Indication: PRODUCT USED FOR UNKNOWN INDICATION
     Dosage: UNK
     Route: 065
  12. BACTRIM [Concomitant]
     Indication: PRODUCT USED FOR UNKNOWN INDICATION
     Dosage: MON/WED/FRI
     Route: 065
  13. ALDACTONE [Concomitant]
     Indication: PRODUCT USED FOR UNKNOWN INDICATION
     Dosage: UNK
     Route: 065
  14. RIFAXIMIN [Concomitant]
     Indication: PRODUCT USED FOR UNKNOWN INDICATION
     Dosage: UNK
     Route: 065
  15. VALCYTE [Concomitant]
     Indication: PRODUCT USED FOR UNKNOWN INDICATION
     Dosage: UNK
     Route: 065

REACTIONS (4)
  - HEPATIC STEATOSIS [None]
  - HEPATIC FUNCTION ABNORMAL [None]
  - LIVER TRANSPLANT [None]
  - IMMUNOSUPPRESSANT DRUG LEVEL INCREASED [None]
